FAERS Safety Report 17388801 (Version 2)
Quarter: 2020Q1

REPORT INFORMATION
  Report Type: Spontaneous
  Country: SE (occurrence: SE)
  Receive Date: 20200207
  Receipt Date: 20200323
  Transmission Date: 20200409
  Serious: Yes (Other)
  Sender: FDA-Public Use
  Company Number: SE-PFIZER INC-2020053970

PATIENT
  Age: 54 Year
  Sex: Female

DRUGS (1)
  1. DALACIN [Suspect]
     Active Substance: CLINDAMYCIN
     Dosage: 100 MG, SINGLE

REACTIONS (3)
  - Genital pain [Unknown]
  - Vulval abscess [Unknown]
  - Genital burning sensation [Unknown]
